FAERS Safety Report 8175891-1 (Version None)
Quarter: 2012Q1

REPORT INFORMATION
  Report Type: 
  Country: None (occurrence: None)
  Receive Date: 20120228
  Receipt Date: 20120217
  Transmission Date: 20120608
  Serious: Yes (Hospitalization)
  Sender: FDA-Public Use
  Company Number: DSA_48842_2012

PATIENT
  Age: 84 Year
  Sex: Female

DRUGS (10)
  1. FUROSEMIDE [Concomitant]
  2. DILTIAZEM [Suspect]
     Indication: PRODUCT USED FOR UNKNOWN INDICATION
     Dosage: (120 MG QD , ORAL), (60 MG QD ORAL
     Route: 048
     Dates: start: 20110804
  3. LORAZEPAM [Concomitant]
  4. PAROXETINE HCL [Concomitant]
  5. NOCTAMID [Concomitant]
  6. ALDACTONE [Suspect]
     Indication: PRODUCT USED FOR UNKNOWN INDICATION
     Dosage: (25 MG QD ORAL)
     Route: 048
     Dates: start: 20100101, end: 20110816
  7. QUINAPRIL HYDROCHLORIDE [Suspect]
     Indication: PRODUCT USED FOR UNKNOWN INDICATION
     Dosage: (20 MG QD ORAL)
     Route: 048
     Dates: start: 20090101, end: 20110816
  8. TRAMADOL HCL [Concomitant]
  9. SINTROM [Concomitant]
  10. OMEPRAZOLE [Concomitant]

REACTIONS (6)
  - MALAISE [None]
  - DRUG INTERACTION [None]
  - HYPERKALAEMIA [None]
  - HYPOTENSION [None]
  - ACIDOSIS [None]
  - RENAL FAILURE ACUTE [None]
